FAERS Safety Report 4799062-1 (Version None)
Quarter: 2005Q4

REPORT INFORMATION
  Report Type: 
  Country: None (occurrence: None)
  Receive Date: 20051014
  Receipt Date: 20051004
  Transmission Date: 20060501
  Serious: Yes (Hospitalization)
  Sender: FDA-Public Use
  Company Number: US-MERCK-0510USA02339

PATIENT
  Sex: Male
  Weight: 102 kg

DRUGS (1)
  1. VIOXX [Suspect]
     Indication: PAIN
     Route: 048
     Dates: start: 20011201, end: 20030714

REACTIONS (4)
  - ARTHRITIS [None]
  - CARDIAC DISORDER [None]
  - CARDIAC OPERATION [None]
  - RENAL DISORDER [None]
